FAERS Safety Report 7665108-6 (Version None)
Quarter: 2011Q3

REPORT INFORMATION
  Report Type: 
  Country: None (occurrence: None)
  Receive Date: 20110806
  Receipt Date: 20110428
  Transmission Date: 20111222
  Serious: No
  Sender: FDA-Public Use
  Company Number: US-ABBOTT-11P-163-0722714-00

PATIENT
  Sex: Male
  Weight: 136.2 kg

DRUGS (8)
  1. NIASPAN [Suspect]
     Indication: BLOOD TRIGLYCERIDES INCREASED
     Dates: start: 20110426
  2. SIMVASTATIN [Concomitant]
     Indication: BLOOD TRIGLYCERIDES INCREASED
  3. METOPROLOL TARTRATE [Concomitant]
     Indication: HYPERTENSION
  4. VITAMIN D [Concomitant]
     Indication: VITAMIN SUPPLEMENTATION
  5. FISH OIL [Concomitant]
     Indication: MEDICAL DIET
  6. COUMADIN [Concomitant]
     Indication: ANTICOAGULANT THERAPY
  7. LEVOTHYROXINE SODIUM [Concomitant]
     Indication: HYPOTHYROIDISM
  8. HYZAAR [Concomitant]
     Indication: HYPERTENSION

REACTIONS (4)
  - FEELING ABNORMAL [None]
  - NAUSEA [None]
  - ABDOMINAL PAIN UPPER [None]
  - PARAESTHESIA [None]
